FAERS Safety Report 9501361 (Version 1)
Quarter: 2013Q1

REPORT INFORMATION
  Report Type: Spontaneous
  Country: US (occurrence: None)
  Receive Date: 20130107
  Receipt Date: 20130107
  Transmission Date: 20140127
  Serious: No
  Sender: FDA-Public Use
  Company Number: PHEH2012US019574

PATIENT
  Sex: 0

DRUGS (1)
  1. GILENYA [Suspect]
     Route: 048
     Dates: start: 20120925

REACTIONS (4)
  - Chest discomfort [None]
  - Fatigue [None]
  - Hypoaesthesia [None]
  - Eye pain [None]
